FAERS Safety Report 5618481-4 (Version None)
Quarter: 2008Q1

REPORT INFORMATION
  Report Type: 
  Country: None (occurrence: None)
  Receive Date: 20080207
  Receipt Date: 20080201
  Transmission Date: 20080703
  Serious: Yes (Life-Threatening, Hospitalization)
  Sender: FDA-Public Use
  Company Number: B0504323A

PATIENT
  Age: 81 Year
  Sex: Female
  Weight: 50 kg

DRUGS (1)
  1. ARIXTRA [Suspect]
     Dosage: 1.5MG PER DAY
     Route: 058

REACTIONS (2)
  - DYSPNOEA [None]
  - PNEUMOTHORAX [None]
